FAERS Safety Report 9958235 (Version 2)
Quarter: 2014Q1

REPORT INFORMATION
  Report Type: Spontaneous
  Country: PR (occurrence: PR)
  Receive Date: 20140304
  Receipt Date: 20140304
  Transmission Date: 20141002
  Serious: No
  Sender: FDA-Public Use
  Company Number: PR-ABBVIE-13P-131-1077368-00

PATIENT
  Sex: Female
  Weight: 52.21 kg

DRUGS (9)
  1. HUMIRA [Suspect]
     Indication: PSORIASIS
     Route: 058
     Dates: start: 201303, end: 201304
  2. HUMIRA [Suspect]
     Route: 058
     Dates: start: 20130514
  3. FIORICET [Concomitant]
     Indication: HEADACHE
     Route: 048
  4. SYNTHROID [Concomitant]
     Indication: HYPOTHYROIDISM
     Route: 048
  5. METFORMIN [Concomitant]
     Indication: DIABETES MELLITUS
     Route: 048
  6. TROPOL [Concomitant]
     Indication: HYPERTENSION
     Route: 048
  7. UNKNOWN MEDICATION [Concomitant]
     Indication: HYPERTENSION
     Route: 048
  8. SIMVASTATIN [Concomitant]
     Indication: BLOOD CHOLESTEROL
     Route: 048
  9. TRICOR [Concomitant]
     Indication: BLOOD CHOLESTEROL
     Route: 048

REACTIONS (6)
  - Nasal congestion [Recovered/Resolved]
  - Sinusitis [Recovered/Resolved]
  - Headache [Recovered/Resolved]
  - Depression [Recovered/Resolved]
  - Blood urine present [Not Recovered/Not Resolved]
  - Anaemia [Not Recovered/Not Resolved]
